FAERS Safety Report 16125836 (Version 1)
Quarter: 2019Q1

REPORT INFORMATION
  Report Type: Spontaneous
  Country: FR (occurrence: FR)
  Receive Date: 20190328
  Receipt Date: 20190328
  Transmission Date: 20190418
  Serious: Yes (Hospitalization, Other)
  Sender: FDA-Public Use
  Company Number: FR-AUROBINDO-AUR-APL-2019-016147

PATIENT

DRUGS (3)
  1. PROPRANOLOL [Concomitant]
     Active Substance: PROPRANOLOL HYDROCHLORIDE
     Indication: HYPERTENSION
     Dosage: UNK
     Route: 048
  2. AMOXICILLIN. [Suspect]
     Active Substance: AMOXICILLIN
     Indication: TONSILLITIS
     Dosage: UNK
     Route: 048
     Dates: start: 20180201, end: 20180201
  3. CERAZETTE [Concomitant]
     Indication: CONTRACEPTION
     Dosage: UNK
     Route: 048

REACTIONS (3)
  - Laryngeal oedema [Recovered/Resolved]
  - Malaise [Recovered/Resolved]
  - Urticaria [Recovered/Resolved]

NARRATIVE: CASE EVENT DATE: 20180201
